FAERS Safety Report 6810051-5 (Version None)
Quarter: 2010Q2

REPORT INFORMATION
  Report Type: 
  Country: None (occurrence: None)
  Receive Date: 20100630
  Receipt Date: 20100621
  Transmission Date: 20101027
  Serious: Yes (Death, Hospitalization)
  Sender: FDA-Public Use
  Company Number: HU-ROCHE-702739

PATIENT
  Sex: Female
  Weight: 63 kg

DRUGS (11)
  1. ROACTEMRA [Suspect]
     Indication: RHEUMATOID ARTHRITIS
     Dosage: FORM: INFUSION, DOSE: 8 MG/KG
     Route: 042
     Dates: start: 20100409
  2. ASPIRIN [Concomitant]
  3. SYNCUMAR [Concomitant]
     Indication: ATRIAL FIBRILLATION
  4. NITROMINT [Concomitant]
     Dosage: NAME: NITROMINT TTS 5
  5. PREDUCTAL [Concomitant]
     Dosage: NAE: PREDUCTAL MR
  6. CARDILOPIN [Concomitant]
     Dosage: DOSE: 1/2 TABLET IN MTHE MORNING
  7. BETALOC ZOK [Concomitant]
     Dosage: DOSE: 1 TABLET IN THE MORNING
  8. RIVOTRIL [Concomitant]
  9. CAVINTON [Concomitant]
  10. ASASANTIN [Concomitant]
  11. HYPOTHIAZID [Concomitant]
     Dosage: 1/2 TABLET IN THE MORNING.

REACTIONS (1)
  - CEREBRAL INFARCTION [None]
